FAERS Safety Report 4691804-9 (Version None)
Quarter: 2005Q2

REPORT INFORMATION
  Report Type: 
  Country: None (occurrence: None)
  Receive Date: 20050616
  Receipt Date: 20050419
  Transmission Date: 20051028
  Serious: Yes (Death, Other)
  Sender: FDA-Public Use
  Company Number: NL-JNJFOC-20050502023

PATIENT
  Sex: Male
  Weight: 60 kg

DRUGS (3)
  1. DURAGESIC-100 [Suspect]
     Route: 062
  2. DURAGESIC-100 [Suspect]
     Indication: CANCER PAIN
     Route: 062
  3. DURAGESIC-100 [Suspect]
     Indication: CANCER PAIN
     Dosage: SWITCHED TO RESERVOIR PATCH IN ERROR ON 05-APR-2005,  BACK ON SMAT  AFTER 19-APR-2005
     Route: 062

REACTIONS (5)
  - INCORRECT DRUG DOSAGE FORM ADMINISTERED [None]
  - MALIGNANT NEOPLASM PROGRESSION [None]
  - MEDICATION ERROR [None]
  - NAUSEA [None]
  - PAIN [None]
